FAERS Safety Report 8145855-2 (Version None)
Quarter: 2012Q1

REPORT INFORMATION
  Report Type: 
  Country: None (occurrence: None)
  Receive Date: 20120217
  Receipt Date: 20110512
  Transmission Date: 20120608
  Serious: No
  Sender: FDA-Public Use
  Company Number: US-ABBOTT-11P-163-0725105-00

PATIENT
  Sex: Female

DRUGS (3)
  1. SIMCOR [Suspect]
     Dosage: 500/20MG QHS, 1 TABLET
  2. SIMCOR [Suspect]
     Indication: PRODUCT USED FOR UNKNOWN INDICATION
     Dosage: 500/20MG QHS, STARTED WITH 2 TABLETS
  3. ASPIRIN [Concomitant]
     Indication: PRODUCT USED FOR UNKNOWN INDICATION
     Dosage: EVERY MORNING

REACTIONS (5)
  - SKIN BURNING SENSATION [None]
  - FLUSHING [None]
  - PARAESTHESIA [None]
  - HYPERHIDROSIS [None]
  - ERYTHEMA [None]
